FAERS Safety Report 19268992 (Version 7)
Quarter: 2021Q3

REPORT INFORMATION
  Report Type: Report from Study
  Country: US (occurrence: US)
  Receive Date: 20210518
  Receipt Date: 20210826
  Transmission Date: 20211014
  Serious: Yes (Other)
  Sender: FDA-Public Use
  Company Number: NVSC2021US107925

PATIENT
  Age: 63 Year
  Sex: Male

DRUGS (3)
  1. ENTRESTO [Suspect]
     Active Substance: SACUBITRIL\VALSARTAN
     Dosage: 50 MG, BID (24/26 MG)
     Route: 065
     Dates: start: 202106
  2. ELIQUIS [Suspect]
     Active Substance: APIXABAN
     Indication: PRODUCT USED FOR UNKNOWN INDICATION
     Dosage: UNK
     Route: 065
  3. ENTRESTO [Suspect]
     Active Substance: SACUBITRIL\VALSARTAN
     Indication: PRODUCT USED FOR UNKNOWN INDICATION
     Dosage: 100 MG (49/51 MG), BID
     Route: 048
     Dates: start: 202104

REACTIONS (11)
  - Atrial fibrillation [Recovering/Resolving]
  - Insomnia [Unknown]
  - Blood test abnormal [Recovered/Resolved]
  - Fluid retention [Unknown]
  - Somnolence [Not Recovered/Not Resolved]
  - Vitreous floaters [Recovering/Resolving]
  - Fatigue [Not Recovered/Not Resolved]
  - Weight increased [Not Recovered/Not Resolved]
  - Vitreous haemorrhage [Recovering/Resolving]
  - Hypotension [Unknown]
  - Erectile dysfunction [Unknown]

NARRATIVE: CASE EVENT DATE: 202104
